FAERS Safety Report 9720259 (Version 1)
Quarter: 2013Q4

REPORT INFORMATION
  Report Type: Report from Study
  Country: NL (occurrence: NL)
  Receive Date: 20131129
  Receipt Date: 20131129
  Transmission Date: 20140711
  Serious: Yes (Hospitalization)
  Sender: FDA-Public Use
  Company Number: NL-ROCHE-1310025

PATIENT
  Age: 68 Year
  Sex: Male
  Weight: 44 kg

DRUGS (5)
  1. MYCOPHENOLATE MOFETIL [Suspect]
     Indication: MALIGNANT LYMPHOID NEOPLASM
     Dosage: LAST DOSE 25/MAR/2013
     Route: 048
     Dates: start: 20130301
  2. CYCLOSPORINE A [Suspect]
     Indication: MALIGNANT LYMPHOID NEOPLASM
     Dosage: LAST DOSE PRIOR TO SAE 25/MAR/2013
     Route: 048
     Dates: start: 20130226
  3. FLUDARABINE [Suspect]
     Indication: MALIGNANT LYMPHOID NEOPLASM
     Route: 042
     Dates: start: 20130226
  4. VALGANCICLOVIR [Concomitant]
     Dosage: LAST DOSE 25/MAR/2013
     Route: 048
     Dates: start: 20130320
  5. CO-TRIMOXAZOL [Concomitant]
     Indication: PROPHYLAXIS
     Dosage: LAST DOSE 25/MAR/2013
     Route: 048
     Dates: start: 20130221

REACTIONS (1)
  - Febrile neutropenia [Recovered/Resolved]
